FAERS Safety Report 5254936-2 (Version None)
Quarter: 2007Q1

REPORT INFORMATION
  Report Type: 
  Country: None (occurrence: None)
  Receive Date: 20070302
  Receipt Date: 20070302
  Transmission Date: 20070707
  Serious: Yes (Hospitalization)
  Sender: FDA-Public Use
  Company Number: None

PATIENT
  Age: 60 Year
  Sex: Female
  Weight: 62.5964 kg

DRUGS (7)
  1. LINEZOLID [Suspect]
     Indication: STAPHYLOCOCCAL INFECTION
     Dosage: 600MG Q12H PO
     Route: 048
     Dates: start: 20070212, end: 20070213
  2. LEVOFLOXACIN [Concomitant]
  3. ALPRAZOLAM [Concomitant]
  4. PREGABALIN [Concomitant]
  5. LORATADINE [Concomitant]
  6. PREDNISONE [Concomitant]
  7. ACYCLOVIR [Concomitant]

REACTIONS (6)
  - APHASIA [None]
  - CEREBROVASCULAR ACCIDENT [None]
  - DIPLOPIA [None]
  - DIZZINESS [None]
  - DYSARTHRIA [None]
  - SOMNOLENCE [None]
